FAERS Safety Report 6591951-0 (Version None)
Quarter: 2010Q1

REPORT INFORMATION
  Report Type: 
  Country: None (occurrence: None)
  Receive Date: 20100221
  Receipt Date: 20090817
  Transmission Date: 20100710
  Serious: Yes (Hospitalization)
  Sender: FDA-Public Use
  Company Number: US-ALLERGAN-0911399US

PATIENT
  Sex: Female

DRUGS (1)
  1. BOTOX [Suspect]
     Indication: OESOPHAGEAL ACHALASIA
     Dosage: UNK
     Route: 030
     Dates: start: 20090803, end: 20090803

REACTIONS (1)
  - DYSPHAGIA [None]
